FAERS Safety Report 7428408-0 (Version None)
Quarter: 2011Q2

REPORT INFORMATION
  Report Type: 
  Country: None (occurrence: None)
  Receive Date: 20110421
  Receipt Date: 20110411
  Transmission Date: 20111010
  Serious: Yes (Disabling, Other)
  Sender: FDA-Public Use
  Company Number: PHFR2011GB01256

PATIENT
  Sex: Male

DRUGS (10)
  1. LORAZEPAM [Concomitant]
     Indication: ANXIETY
     Dosage: 0.5 MG
     Route: 048
  2. BENZTROPINE MESYLATE [Concomitant]
  3. MULTI-VITAMINS [Concomitant]
     Route: 048
  4. TERAZOSIN [Concomitant]
     Dosage: 2 MG
     Route: 048
  5. LANSOPRAZOLE [Concomitant]
     Indication: DYSPEPSIA
     Dosage: 30 MG
     Route: 048
  6. RIVASTIGMINE [Concomitant]
     Dosage: 4.6MG
  7. CLOZARIL [Suspect]
     Indication: SCHIZOPHRENIA
     Dosage: 300 MG, UNK
     Route: 048
  8. DULOXETINE [Concomitant]
     Indication: DEPRESSION
     Dosage: 120MG
     Route: 048
     Dates: start: 20090101
  9. CLONAZEPAM [Concomitant]
     Indication: ANXIETY
     Dosage: 0.5 MG
     Route: 048
  10. MADOPAR [Concomitant]
     Indication: PARKINSON'S DISEASE
     Dosage: 125X6
     Route: 048
     Dates: start: 20080101

REACTIONS (1)
  - PARKINSON'S DISEASE [None]
